FAERS Safety Report 4801849-3 (Version None)
Quarter: 2005Q4

REPORT INFORMATION
  Report Type: 
  Country: None (occurrence: None)
  Receive Date: 20051011
  Receipt Date: 20050928
  Transmission Date: 20060501
  Serious: Yes (Death)
  Sender: FDA-Public Use
  Company Number: HQWYE762730SEP05

PATIENT
  Sex: Male

DRUGS (1)
  1. INDERAL [Suspect]
     Dosage: OVERDOSE OF APPROXIMATELY 150 40MG TABLETS, ORAL
     Route: 048

REACTIONS (2)
  - INTENTIONAL DRUG MISUSE [None]
  - OVERDOSE [None]
